FAERS Safety Report 5613489-7 (Version None)
Quarter: 2008Q1

REPORT INFORMATION
  Report Type: 
  Country: None (occurrence: None)
  Receive Date: 20080129
  Receipt Date: 20080117
  Transmission Date: 20080703
  Serious: Yes (Death, Life-Threatening, Hospitalization)
  Sender: FDA-Public Use
  Company Number: 2007-01647

PATIENT
  Age: 75 Year
  Sex: Male
  Weight: 53 kg

DRUGS (13)
  1. VELCADE [Suspect]
     Indication: MULTIPLE MYELOMA
     Dosage: MG, INTRAVENOUS
     Route: 042
     Dates: start: 20070516, end: 20070519
  2. TIZANIDINE HCL [Concomitant]
  3. ALFAROL (ALFACALCIDOL) [Concomitant]
  4. LANSOPRAZOLE [Concomitant]
  5. SELBEX (TEPRENONE) [Concomitant]
  6. MAGNESIUM OXIDE (MAGNESIUM OXIDE) [Concomitant]
  7. AMARYL [Concomitant]
  8. DICLOFENAC SODIUM [Concomitant]
  9. DEXAMETHASONE TAB [Concomitant]
  10. PRODIF [Concomitant]
  11. FUNGUARD [Concomitant]
  12. CEFAMEZOL (CEFAZOLIN SODIUM) [Concomitant]
  13. CARBENIN (BETAMIPRON, PANIPENEM) [Concomitant]

REACTIONS (7)
  - FUNGAL INFECTION [None]
  - GASTROINTESTINAL HAEMORRHAGE [None]
  - GASTROINTESTINAL TELANGIECTASIA [None]
  - MOUTH HAEMORRHAGE [None]
  - NEOPLASM PROGRESSION [None]
  - PYREXIA [None]
  - SEPSIS [None]
